FAERS Safety Report 9216777 (Version 1)
Quarter: 2013Q2

REPORT INFORMATION
  Report Type: Spontaneous
  Country: US (occurrence: US)
  Receive Date: 20130408
  Receipt Date: 20130408
  Transmission Date: 20140414
  Serious: Yes (Other)
  Sender: FDA-Public Use
  Company Number: US-PFIZER INC-2013107538

PATIENT
  Age: 19 Year
  Sex: Male
  Weight: 92.06 kg

DRUGS (1)
  1. ADVIL [Suspect]
     Indication: HEADACHE
     Dosage: 2 TABLETS, AS NEEDED

REACTIONS (1)
  - Erection increased [Not Recovered/Not Resolved]
